FAERS Safety Report 10442162 (Version 1)
Quarter: 2014Q2

REPORT INFORMATION
  Report Type: Spontaneous
  Country: US (occurrence: None)
  Receive Date: 20140617
  Receipt Date: 20140617
  Transmission Date: 20141212
  Serious: Yes (Other)
  Sender: FDA-Public Use
  Company Number: 698276

PATIENT
  Age: 70 Year
  Sex: Female
  Weight: 54 kg

DRUGS (7)
  1. ACTEMRA [Suspect]
     Indication: RHEUMATOID ARTHRITIS
     Dosage: (218 MG,1 IN 4 WK),INTRAVENOUS (NOT OTHERWISE SPECIFIED)
     Route: 042
     Dates: end: 20100405
  2. METHOTREXATE (METHOTREXATE) [Suspect]
     Indication: RHEUMATOID ARTHRITIS
     Dosage: 1
     Route: 058
  3. LEVOXYL(LEVOTHYROXINE SODIUM) [Concomitant]
  4. ACIPHEX(RABEPRAZOLE SODIUM) [Concomitant]
  5. NIFEDIPINE(NIFEDIPINE) [Concomitant]
  6. CYMBALTA(DULOXETINE HYDROCHLORIDE) [Concomitant]
  7. SALAGEN(PILOCARPINE HYDROCHLORIDE) IL 5 MA (FNR A VEAR).NRAL [Concomitant]

REACTIONS (2)
  - Neutropenia [None]
  - Hypergammaglobulinaemia benign monoclonal [None]
